FAERS Safety Report 5782170-6 (Version None)
Quarter: 2008Q2

REPORT INFORMATION
  Report Type: 
  Country: None (occurrence: None)
  Receive Date: 20080623
  Receipt Date: 20080616
  Transmission Date: 20081010
  Serious: Yes (Other)
  Sender: FDA-Public Use
  Company Number: GB-SANOFI-SYNTHELABO-A01200803851

PATIENT
  Sex: Male
  Weight: 100 kg

DRUGS (8)
  1. ONDANSETRON [Concomitant]
     Dosage: EVERY CYCLE
  2. DEXAMETHASONE TAB [Concomitant]
     Dosage: THREE TIMES DAILY FOR 3 DAYS 2 MG
  3. METHOTREXATE [Concomitant]
     Dosage: UNK
  4. FLUOROURACIL [Concomitant]
     Dosage: 800 MG
     Route: 042
  5. FLUOROURACIL [Concomitant]
     Dosage: 4750 MG INFUSED OVER 48 HOURS
     Route: 042
  6. FOLIC ACID [Concomitant]
     Dosage: 400 MG IV
     Route: 042
  7. ELOXATIN [Suspect]
     Indication: COLON CANCER
     Route: 042
     Dates: start: 20080319, end: 20080319
  8. INFLIXIMAB [Concomitant]
     Dosage: UNK

REACTIONS (1)
  - LARYNGOSPASM [None]
